FAERS Safety Report 16362578 (Version 2)
Quarter: 2019Q2

REPORT INFORMATION
  Report Type: Report from Study
  Country: CO (occurrence: CO)
  Receive Date: 20190528
  Receipt Date: 20190610
  Transmission Date: 20190711
  Serious: Yes (Hospitalization, Other)
  Sender: FDA-Public Use
  Company Number: CO-INCYTE CORPORATION-2019IN005069

PATIENT

DRUGS (1)
  1. JAKAVI [Suspect]
     Active Substance: RUXOLITINIB
     Indication: POLYCYTHAEMIA VERA
     Dosage: 10 MG, QD
     Route: 048
     Dates: start: 20190203

REACTIONS (8)
  - Portal hypertension [Unknown]
  - Gastric disorder [Unknown]
  - Haemorrhage [Unknown]
  - Inappropriate schedule of product administration [Unknown]
  - Oesophageal varices haemorrhage [Unknown]
  - Gastric haemorrhage [Unknown]
  - Melaena [Unknown]
  - Haematemesis [Unknown]

NARRATIVE: CASE EVENT DATE: 20190416
